FAERS Safety Report 24917358 (Version 1)
Quarter: 2025Q1

REPORT INFORMATION
  Report Type: Spontaneous
  Country: ES (occurrence: ES)
  Receive Date: 20250203
  Receipt Date: 20250203
  Transmission Date: 20250409
  Serious: Yes (Other)
  Sender: GLAXOSMITHKLINE
  Company Number: None

PATIENT

DRUGS (1)
  1. LAMOTRIGINE [Suspect]
     Active Substance: LAMOTRIGINE
     Indication: Epilepsy
     Dosage: UNK UNK, QD
     Route: 065
     Dates: start: 20240920, end: 20241008

REACTIONS (2)
  - Rash [Unknown]
  - Cheilitis [Unknown]

NARRATIVE: CASE EVENT DATE: 20241007
